FAERS Safety Report 19694265 (Version 1)
Quarter: 2021Q3

REPORT INFORMATION
  Report Type: Report from Study
  Country: BR (occurrence: BR)
  Receive Date: 20210812
  Receipt Date: 20210812
  Transmission Date: 20211014
  Serious: Yes (Other)
  Sender: FDA-Public Use
  Company Number: PHHY2019BR214361

PATIENT
  Age: 55 Year
  Sex: Female

DRUGS (9)
  1. COSENTYX [Suspect]
     Active Substance: SECUKINUMAB
     Dosage: UNK
     Route: 065
     Dates: start: 20190909
  2. ACICLOVIR [Suspect]
     Active Substance: ACYCLOVIR
     Indication: BELL^S PALSY
     Dosage: UNK, UNKNOWN
     Route: 065
  3. COSENTYX [Suspect]
     Active Substance: SECUKINUMAB
     Dosage: UNK
     Route: 065
     Dates: start: 20201216
  4. COSENTYX [Suspect]
     Active Substance: SECUKINUMAB
     Dosage: UNK
     Route: 065
     Dates: start: 20191014
  5. GABAPENTIN. [Suspect]
     Active Substance: GABAPENTIN
     Indication: NEURALGIA
     Dosage: 300 MG, Q12H
     Route: 065
  6. COSENTYX [Suspect]
     Active Substance: SECUKINUMAB
     Indication: PSORIASIS
     Dosage: 2 DF (2 PENS OF 150MG?300MG), QMO
     Route: 065
     Dates: start: 20190712
  7. COSENTYX [Suspect]
     Active Substance: SECUKINUMAB
     Indication: PSORIATIC ARTHROPATHY
     Dosage: 300 MG
     Route: 065
     Dates: start: 201907
  8. COSENTYX [Suspect]
     Active Substance: SECUKINUMAB
     Dosage: UNK
     Route: 065
     Dates: start: 20210508
  9. ACICLOVIR [Suspect]
     Active Substance: ACYCLOVIR
     Indication: BELL^S PALSY

REACTIONS (25)
  - Herpes virus infection [Unknown]
  - Neuralgia [Unknown]
  - Ear pain [Recovered/Resolved]
  - Ear pain [Recovered/Resolved]
  - Ear pain [Recovered/Resolved]
  - Neck pain [Recovered/Resolved]
  - Skin exfoliation [Unknown]
  - Corneal reflex decreased [Unknown]
  - Skin lesion [Unknown]
  - Arthralgia [Recovered/Resolved]
  - Pain in extremity [Not Recovered/Not Resolved]
  - Infection [Unknown]
  - Therapeutic product effect incomplete [Not Recovered/Not Resolved]
  - Blood pressure increased [Unknown]
  - Nasopharyngitis [Recovered/Resolved]
  - Psoriasis [Not Recovered/Not Resolved]
  - Arthralgia [Not Recovered/Not Resolved]
  - Stress [Unknown]
  - Headache [Recovered/Resolved]
  - Tremor [Unknown]
  - Bell^s palsy [Recovering/Resolving]
  - Skin injury [Unknown]
  - Skin lesion inflammation [Unknown]
  - Pain [Unknown]
  - Decreased immune responsiveness [Unknown]

NARRATIVE: CASE EVENT DATE: 201909
